FAERS Safety Report 9231910 (Version 1)
Quarter: 2013Q2

REPORT INFORMATION
  Report Type: Spontaneous
  Country: US (occurrence: US)
  Receive Date: 20130415
  Receipt Date: 20130415
  Transmission Date: 20140414
  Serious: Yes (Hospitalization)
  Sender: FDA-Public Use
  Company Number: US-BAXTER-2013BAX012142

PATIENT
  Age: 0 Year
  Sex: Female
  Weight: 3.3 kg

DRUGS (6)
  1. BUMINATE [Suspect]
     Indication: BLOOD ALBUMIN DECREASED
     Route: 042
     Dates: start: 20130320, end: 20130320
  2. BUMINATE [Suspect]
     Indication: ASCITES
  3. IRON SUPPLEMENT [Suspect]
     Indication: SUPPLEMENTATION THERAPY
     Route: 065
  4. ZANTAC [Concomitant]
     Indication: GASTROOESOPHAGEAL REFLUX DISEASE
     Route: 048
  5. LASIX [Concomitant]
     Indication: PRODUCT USED FOR UNKNOWN INDICATION
     Route: 042
     Dates: start: 20130320
  6. ALDACTONE [Concomitant]
     Indication: PRODUCT USED FOR UNKNOWN INDICATION
     Route: 048
     Dates: start: 20130321, end: 20130326

REACTIONS (2)
  - Blood iron increased [Recovered/Resolved]
  - Infusion related reaction [Recovered/Resolved]
